FAERS Safety Report 8608658-8 (Version None)
Quarter: 2012Q3

REPORT INFORMATION
  Report Type: 
  Country: None (occurrence: None)
  Receive Date: 20120821
  Receipt Date: 20120813
  Transmission Date: 20120928
  Serious: Yes (Hospitalization)
  Sender: FDA-Public Use
  Company Number: NL-PFIZER INC-2012199839

PATIENT
  Sex: Female
  Weight: 121 kg

DRUGS (6)
  1. PAROXETINE HCL [Concomitant]
     Indication: NEUROSIS
     Dosage: UNK
     Dates: start: 19990916
  2. LEVOTHYROXINE [Concomitant]
     Indication: BLOOD THYROID STIMULATING HORMONE DECREASED
     Dosage: UNK
     Dates: start: 19961115
  3. TRIGYNON [Concomitant]
     Indication: HYPOGONADISM
     Dosage: UNK
     Dates: start: 19930715
  4. LEVOTHYROXINE [Concomitant]
     Indication: PRIMARY HYPOTHYROIDISM
  5. CORTISONE ACETATE [Concomitant]
     Indication: BLOOD CORTICOTROPHIN DECREASED
     Dosage: UNK
     Dates: start: 19961115
  6. SOMATROPIN RDNA [Suspect]
     Indication: GROWTH HORMONE DEFICIENCY
     Dosage: 1.2 MG, 7WK
     Route: 058
     Dates: start: 20040115, end: 20050224

REACTIONS (1)
  - CAESAREAN SECTION [None]
